FAERS Safety Report 14541816 (Version 1)
Quarter: 2018Q1

REPORT INFORMATION
  Report Type: Spontaneous
  Country: SE (occurrence: SE)
  Receive Date: 20180216
  Receipt Date: 20180216
  Transmission Date: 20180509
  Serious: Yes (Hospitalization)
  Sender: FDA-Public Use
  Company Number: SE-TEVA-2018-SE-857939

PATIENT
  Age: 75 Year
  Sex: Male

DRUGS (1)
  1. GLIBENCLAMIDE [Suspect]
     Active Substance: GLYBURIDE
     Indication: DIABETES MELLITUS
     Route: 065
     Dates: end: 20171215

REACTIONS (2)
  - Blood glucose decreased [Recovered/Resolved]
  - Loss of consciousness [Recovered/Resolved]

NARRATIVE: CASE EVENT DATE: 20171215
